FAERS Safety Report 10735786 (Version 3)
Quarter: 2017Q2

REPORT INFORMATION
  Report Type: Spontaneous
  Country: US (occurrence: US)
  Receive Date: 20150126
  Receipt Date: 20170504
  Transmission Date: 20170829
  Serious: No
  Sender: FDA-Public Use
  Company Number: US-ASTRAZENECA-2015SE04543

PATIENT
  Sex: Male

DRUGS (7)
  1. SYMBICORT [Suspect]
     Active Substance: BUDESONIDE\FORMOTEROL FUMARATE DIHYDRATE
     Indication: BRONCHITIS CHRONIC
     Dosage: 80/4.5 MCG 2 PUFFS TWICE PER DAY
     Route: 055
     Dates: start: 20170427
  2. DALIRESP [Suspect]
     Active Substance: ROFLUMILAST
     Route: 048
  3. TRICOR [Concomitant]
     Active Substance: FENOFIBRATE
     Indication: BLOOD TRIGLYCERIDES
     Route: 048
  4. PROVENTAL [Concomitant]
     Dosage: USES DAILY
     Route: 055
  5. IAPRATROIUM [Concomitant]
     Dosage: SALINE SOLUTION IN NEBULIZER 2 TIMES PER DAY
  6. MUCINEX [Concomitant]
     Active Substance: GUAIFENESIN
     Indication: NASAL CONGESTION
     Dosage: AS NEEDED DAILY
     Route: 055
  7. ZOCOR [Concomitant]
     Active Substance: SIMVASTATIN
     Indication: BLOOD TRIGLYCERIDES
     Route: 048

REACTIONS (10)
  - Pulmonary congestion [Unknown]
  - Productive cough [Unknown]
  - Nasopharyngitis [Unknown]
  - Condition aggravated [Unknown]
  - Inflammation [Unknown]
  - Lung disorder [Unknown]
  - Infection [Unknown]
  - Ear infection [Unknown]
  - Oropharyngeal pain [Unknown]
  - Chronic respiratory disease [Unknown]
